FAERS Safety Report 20705895 (Version 1)
Quarter: 2022Q2

REPORT INFORMATION
  Report Type: Report from Study
  Country: BR (occurrence: BR)
  Receive Date: 20220413
  Receipt Date: 20220413
  Transmission Date: 20220721
  Serious: Yes (Other)
  Sender: FDA-Public Use
  Company Number: BR-UCBSA-2021052283

PATIENT
  Age: 65 Year
  Sex: Female
  Weight: 80 kg

DRUGS (6)
  1. CERTOLIZUMAB PEGOL [Suspect]
     Active Substance: CERTOLIZUMAB PEGOL
     Indication: Rheumatoid arthritis
     Dosage: 200 MILLIGRAM, EV 15 DAYS
     Route: 058
     Dates: start: 202109
  2. ENALAPRIL [Concomitant]
     Active Substance: ENALAPRIL
     Indication: Hypertension
     Dosage: UNK
     Route: 048
     Dates: start: 202107
  3. HYDROCHLOROTHIAZIDE [Concomitant]
     Active Substance: HYDROCHLOROTHIAZIDE
     Indication: Hypertension
     Dosage: UNK
     Route: 048
     Dates: start: 202108
  4. ATENOLOL [Concomitant]
     Active Substance: ATENOLOL
     Indication: Hypertension
     Dosage: UNK
     Route: 048
     Dates: start: 2020
  5. ESCITALOPRAM [Concomitant]
     Active Substance: ESCITALOPRAM OXALATE
     Indication: Insomnia
     Dosage: 2 DOSAGE FORM, ONCE DAILY (QD)
     Route: 048
  6. DIPYRONE [Concomitant]
     Active Substance: DIPYRONE
     Indication: Pain
     Dosage: UNK
     Route: 048
     Dates: start: 20220201

REACTIONS (16)
  - Bedridden [Not Recovered/Not Resolved]
  - Pain [Not Recovered/Not Resolved]
  - Rash [Not Recovered/Not Resolved]
  - Skin discolouration [Not Recovered/Not Resolved]
  - Erythema [Not Recovered/Not Resolved]
  - Peripheral swelling [Not Recovered/Not Resolved]
  - Herpes zoster [Not Recovered/Not Resolved]
  - Swelling [Not Recovered/Not Resolved]
  - Gait disturbance [Not Recovered/Not Resolved]
  - Headache [Not Recovered/Not Resolved]
  - Wound [Not Recovered/Not Resolved]
  - Hypertension [Not Recovered/Not Resolved]
  - Atrophy [Not Recovered/Not Resolved]
  - Product availability issue [Unknown]
  - Therapy interrupted [Unknown]
  - Inappropriate schedule of product administration [Unknown]

NARRATIVE: CASE EVENT DATE: 20211021
